FAERS Safety Report 7715191-4 (Version None)
Quarter: 2011Q3

REPORT INFORMATION
  Report Type: 
  Country: None (occurrence: None)
  Receive Date: 20110822
  Receipt Date: 20110805
  Transmission Date: 20111222
  Serious: Yes (Death)
  Sender: FDA-Public Use
  Company Number: 2011MA011502

PATIENT
  Age: 33 Year
  Sex: Male

DRUGS (4)
  1. IBUPROFEN [Suspect]
  2. VENLAFAXINE [Suspect]
  3. 3,4-METHYLENEDIOXYMETHAMPHETAMINE (NO PREF. NAME) [Suspect]
  4. CODEINE SULFATE [Suspect]

REACTIONS (3)
  - SHOCK HAEMORRHAGIC [None]
  - LACERATION [None]
  - MULTIPLE INJURIES [None]
